FAERS Safety Report 11312640 (Version 1)
Quarter: 2015Q3

REPORT INFORMATION
  Report Type: Spontaneous
  Country: US (occurrence: US)
  Receive Date: 20150727
  Receipt Date: 20150727
  Transmission Date: 20151125
  Serious: No
  Sender: FDA-Public Use
  Company Number: US-ABBVIE-14P-163-1305448-00

PATIENT
  Sex: Male
  Weight: 73.09 kg

DRUGS (4)
  1. NAVANE [Concomitant]
     Active Substance: THIOTHIXENE
     Indication: ANXIETY
  2. KLONOPIN [Concomitant]
     Active Substance: CLONAZEPAM
     Indication: ANXIETY
  3. SYNTHROID [Suspect]
     Active Substance: LEVOTHYROXINE SODIUM
     Indication: OFF LABEL USE
     Dosage: 1.5 TABLETS EVERY DAY
     Route: 048
     Dates: start: 2014
  4. SYNTHROID [Suspect]
     Active Substance: LEVOTHYROXINE SODIUM
     Dosage: 1.5 TABLETS  MONDAY THROUGH FRIDAY AND 2 TABLETS ON SATURDAY AND SUNDAY
     Route: 048

REACTIONS (2)
  - Off label use [Not Recovered/Not Resolved]
  - Blood thyroid stimulating hormone increased [Not Recovered/Not Resolved]
